FAERS Safety Report 13128485 (Version 5)
Quarter: 2017Q1

REPORT INFORMATION
  Report Type: Report from Study
  Country: US (occurrence: US)
  Receive Date: 20170118
  Receipt Date: 20170329
  Transmission Date: 20170428
  Serious: Yes (Other)
  Sender: FDA-Public Use
  Company Number: US-JAZZ-2016-US-021208

PATIENT
  Age: 34 Year
  Sex: Female

DRUGS (18)
  1. GABAPENTIN. [Concomitant]
     Active Substance: GABAPENTIN
  2. METHYLPHENIDATE. [Concomitant]
     Active Substance: METHYLPHENIDATE
  3. XYREM [Suspect]
     Active Substance: SODIUM OXYBATE
     Indication: NARCOLEPSY
     Dosage: 2.25 G, BID
     Route: 048
     Dates: start: 201512, end: 201512
  4. NUVIGIL [Concomitant]
     Active Substance: ARMODAFINIL
  5. NUVARING VAGINAL [Concomitant]
  6. ACIDOPHILUS [Concomitant]
     Active Substance: LACTOBACILLUS ACIDOPHILUS
  7. COENZYME Q10 [Concomitant]
     Active Substance: UBIDECARENONE
  8. NORETHINDRONE                      /00044901/ [Concomitant]
     Active Substance: NORETHINDRONE
  9. ST. JOHN^S WORT                    /01166801/ [Concomitant]
     Active Substance: ST. JOHN^S WORT
  10. GLUCOSAMINE CHONDROITIN            /01430901/ [Concomitant]
  11. XYREM [Suspect]
     Active Substance: SODIUM OXYBATE
     Dosage: DOSE ADJUSTMENTS
     Route: 048
     Dates: start: 201512, end: 201601
  12. SPIRONOLACTONE. [Concomitant]
     Active Substance: SPIRONOLACTONE
  13. VITAMIN C [Concomitant]
     Active Substance: ASCORBIC ACID
  14. XYREM [Suspect]
     Active Substance: SODIUM OXYBATE
     Dosage: 4.5 G, QD
     Route: 048
     Dates: start: 201601
  15. FISH OIL + VITAMIN D3 [Concomitant]
  16. MULTIVITAMINS                      /00116001/ [Concomitant]
  17. ALEVE [Concomitant]
     Active Substance: NAPROXEN SODIUM
  18. TRAMADOL. [Suspect]
     Active Substance: TRAMADOL
     Indication: PRODUCT USED FOR UNKNOWN INDICATION

REACTIONS (4)
  - Carpal tunnel syndrome [Recovering/Resolving]
  - Tooth injury [Not Recovered/Not Resolved]
  - Pre-existing condition improved [Unknown]
  - Nephrolithiasis [Not Recovered/Not Resolved]

NARRATIVE: CASE EVENT DATE: 20161227
